FAERS Safety Report 6273535-7 (Version None)
Quarter: 2009Q3

REPORT INFORMATION
  Report Type: 
  Country: None (occurrence: None)
  Receive Date: 20090716
  Receipt Date: 20090707
  Transmission Date: 20100115
  Serious: Yes (Other)
  Sender: FDA-Public Use
  Company Number: CZ-1170179

PATIENT
  Age: 54 Year
  Sex: Female

DRUGS (1)
  1. FLUORESCITE [Suspect]
     Dosage: 5 ML
     Route: 040
     Dates: start: 20090622, end: 20090622

REACTIONS (1)
  - LOSS OF CONSCIOUSNESS [None]
